FAERS Safety Report 9129073 (Version 1)
Quarter: 2013Q1

REPORT INFORMATION
  Report Type: Report from Study
  Country: US (occurrence: US)
  Receive Date: 20130125
  Receipt Date: 20130125
  Transmission Date: 20140127
  Serious: Yes (Other)
  Sender: FDA-Public Use
  Company Number: US-US-EMD SERONO, INC.-7187883

PATIENT
  Age: 46 Year
  Sex: Male

DRUGS (19)
  1. EGRIFTA [Suspect]
     Indication: LIPODYSTROPHY ACQUIRED
     Route: 058
     Dates: start: 20121126
  2. INTELENCE [Concomitant]
     Indication: HIV INFECTION
     Route: 048
     Dates: start: 20120705
  3. PREZISTA [Concomitant]
     Indication: HIV INFECTION
     Route: 048
     Dates: start: 20121116
  4. NORVIR [Concomitant]
     Indication: HIV INFECTION
     Route: 048
     Dates: start: 20120705
  5. TRUVADA [Concomitant]
     Indication: HIV INFECTION
     Dosage: 200-300 MG
     Route: 048
     Dates: start: 20120705
  6. DEPO-TOSTOSTERONE [Concomitant]
     Indication: PRODUCT USED FOR UNKNOWN INDICATION
     Dosage: MINERAL OIL
     Route: 030
     Dates: start: 20121210
  7. LISINOPRIL [Concomitant]
     Indication: PRODUCT USED FOR UNKNOWN INDICATION
     Route: 048
     Dates: start: 20120705
  8. HYDROCHLOROTHIAZIDE [Concomitant]
     Indication: PRODUCT USED FOR UNKNOWN INDICATION
     Route: 048
     Dates: start: 20120705
  9. MULTIVITAMINS [Concomitant]
     Indication: PRODUCT USED FOR UNKNOWN INDICATION
     Route: 048
     Dates: start: 20101025
  10. NASONEX [Concomitant]
     Indication: PRODUCT USED FOR UNKNOWN INDICATION
     Route: 045
     Dates: start: 20120705
  11. CIALIS [Concomitant]
     Indication: PRODUCT USED FOR UNKNOWN INDICATION
     Route: 048
     Dates: start: 20120705
  12. FINASTERIDE [Concomitant]
     Indication: PRODUCT USED FOR UNKNOWN INDICATION
     Route: 048
     Dates: start: 20120705
  13. VALACYCLOVIR [Concomitant]
     Indication: PRODUCT USED FOR UNKNOWN INDICATION
     Route: 048
     Dates: start: 20120705
  14. OXANDRIN [Concomitant]
     Indication: PRODUCT USED FOR UNKNOWN INDICATION
     Route: 048
     Dates: start: 20121119
  15. WELLBUTRIN SR [Concomitant]
     Indication: PRODUCT USED FOR UNKNOWN INDICATION
     Dosage: EXTENDED RELEASE EVERY 12 HOURS
     Route: 048
     Dates: start: 20120803
  16. ZOLPIDEM TARATRATE [Concomitant]
     Indication: INSOMNIA
     Dosage: AT BEDTIME
     Route: 048
     Dates: start: 20121119
  17. MEN^S MULTIVITAMIN (PLUS) [Concomitant]
     Indication: PRODUCT USED FOR UNKNOWN INDICATION
     Route: 048
  18. RITALIN [Concomitant]
     Indication: PRODUCT USED FOR UNKNOWN INDICATION
     Route: 048
     Dates: start: 20120705
  19. TYLENOL PM [Concomitant]
     Indication: INSOMNIA

REACTIONS (9)
  - Anogenital dysplasia [Unknown]
  - Skin mass [Unknown]
  - Red blood cell count increased [Unknown]
  - Haemoglobin increased [Unknown]
  - Haematocrit increased [Unknown]
  - Epidermal growth factor receptor decreased [Unknown]
  - Aspartate aminotransferase increased [Unknown]
  - Alanine aminotransferase increased [Unknown]
  - Blood creatinine increased [Unknown]
